FAERS Safety Report 10310271 (Version 7)
Quarter: 2016Q1

REPORT INFORMATION
  Report Type: Spontaneous
  Country: US (occurrence: US)
  Receive Date: 20140717
  Receipt Date: 20160115
  Transmission Date: 20160525
  Serious: Yes (Hospitalization)
  Sender: FDA-Public Use
  Company Number: US-PFIZER INC-2014195452

PATIENT
  Age: 68 Year
  Sex: Female
  Weight: 80 kg

DRUGS (20)
  1. TRAVATAN [Concomitant]
     Active Substance: TRAVOPROST
     Dosage: UNK
  2. SUTENT [Suspect]
     Active Substance: SUNITINIB MALATE
     Indication: RENAL CELL CARCINOMA
     Dosage: 50 MG, DAILY
     Route: 048
     Dates: start: 20140620, end: 20140707
  3. AVAPRO [Concomitant]
     Active Substance: IRBESARTAN
     Dosage: 150 MG, 1X/DAY
     Route: 048
     Dates: start: 20140709
  4. SENNA [Concomitant]
     Active Substance: SENNA LEAF\SENNOSIDES\SENNOSIDES A AND B
     Indication: CONSTIPATION
     Dosage: 2 DF, 2X/DAY (2 TABLETS)
     Route: 048
  5. SENNA [Concomitant]
     Active Substance: SENNA LEAF\SENNOSIDES\SENNOSIDES A AND B
     Dosage: 8.6 MG, AS NEEDED (1X/DAY AT BEDTIME)
     Route: 048
  6. ZANTAC [Concomitant]
     Active Substance: RANITIDINE HYDROCHLORIDE
     Indication: DYSPEPSIA
     Dosage: 150 MG, 2X/DAY, AS NEEDED
     Route: 048
  7. SUTENT [Suspect]
     Active Substance: SUNITINIB MALATE
     Dosage: 37.5 MG, CYCLIC (1 WEEK ON 1 WEEK OFF)
     Route: 048
     Dates: end: 20151228
  8. LIPITOR [Concomitant]
     Active Substance: ATORVASTATIN CALCIUM
     Dosage: 10 MG, 1X/DAY (AT BEDTIME)
     Route: 048
  9. SENOKOT [Concomitant]
     Active Substance: SENNOSIDES
     Dosage: UNK, AS NEEDED
     Route: 048
  10. ASPIRIN. [Concomitant]
     Active Substance: ASPIRIN
     Indication: CARDIOVASCULAR EVENT PROPHYLAXIS
     Dosage: 81 MG, 1X/DAY
     Route: 048
  11. SUTENT [Suspect]
     Active Substance: SUNITINIB MALATE
     Dosage: 37.5 MG, 1X/DAY (2 WEEKS ON AND 1 WEEK OFF)
     Route: 048
     Dates: start: 2014
  12. XALATAN [Concomitant]
     Active Substance: LATANOPROST
     Dosage: UNK
  13. COMBIGAN [Concomitant]
     Active Substance: BRIMONIDINE TARTRATE\TIMOLOL MALEATE
     Dosage: 1 DF, 2X/DAY(1 DROP TO EACH AFFECTED EYE)
     Route: 047
  14. TRAMADOL. [Concomitant]
     Active Substance: TRAMADOL
     Indication: PAIN
     Dosage: 50 MG, AS NEEDED (3 TIMES A DAY)
     Route: 048
  15. CLOBETASOL [Concomitant]
     Active Substance: CLOBETASOL
     Dosage: 0.05 %, AS NEEDED APPLY TO HANDS AND FEET (1X/DAY AT BED TIME)
     Route: 061
  16. PREVACID [Concomitant]
     Active Substance: LANSOPRAZOLE
     Dosage: 30 MG, 1X/DAY
     Route: 048
  17. SUTENT [Suspect]
     Active Substance: SUNITINIB MALATE
     Dosage: 37.5 MG, UNK
     Route: 048
     Dates: start: 20140710
  18. NAPROXEN. [Concomitant]
     Active Substance: NAPROXEN
     Dosage: 250 MG, AS NEEDED (2 TIMES A DAY)
     Route: 048
  19. TYLENOL EXTRA STRENGTH [Concomitant]
     Active Substance: ACETAMINOPHEN
     Dosage: 1000 MG, AS NEEDED (EVERY 6 HOURS)
     Route: 048
  20. OXYCODONE [Concomitant]
     Active Substance: OXYCODONE
     Dosage: 5 MG, EVERY 4 HRS
     Route: 048

REACTIONS (15)
  - Blood thyroid stimulating hormone increased [Unknown]
  - Skin mass [Unknown]
  - Metastatic renal cell carcinoma [Unknown]
  - Back pain [Unknown]
  - Asthenia [Unknown]
  - Constipation [Unknown]
  - Hypertension [Not Recovered/Not Resolved]
  - Alopecia [Unknown]
  - Toxicity to various agents [Unknown]
  - Lacrimation increased [Not Recovered/Not Resolved]
  - Pyrexia [Unknown]
  - Decreased appetite [Unknown]
  - Palmar-plantar erythrodysaesthesia syndrome [Recovering/Resolving]
  - Dysgeusia [Unknown]
  - Disease progression [Unknown]

NARRATIVE: CASE EVENT DATE: 2014
